FAERS Safety Report 6236749-8 (Version None)
Quarter: 2009Q2

REPORT INFORMATION
  Report Type: 
  Country: None (occurrence: None)
  Receive Date: 20090619
  Receipt Date: 20090611
  Transmission Date: 20091009
  Serious: Yes (Other)
  Sender: FDA-Public Use
  Company Number: PHHY2009AU23118

PATIENT
  Sex: Female

DRUGS (17)
  1. ZOMETA [Suspect]
     Dosage: 5 MG, UNK
     Route: 042
     Dates: start: 20090605
  2. VENLAFAXINE HCL [Concomitant]
     Dosage: 150 MG, BID
  3. OMEPRAZOLE [Concomitant]
     Dosage: 20 MG, BID
  4. CALCIUM [Concomitant]
     Dosage: 600 MG, BID
  5. PARACETAMOL [Concomitant]
     Dosage: 1 G, QID
  6. METOCLOPRAMIDE [Concomitant]
     Dosage: 5 MG, TID
  7. LEVOTHYROXINE SODIUM [Concomitant]
     Dosage: 50 MG/DAY
  8. LEVOTHYROXINE SODIUM [Concomitant]
     Dosage: 75 MG/DAY
     Dates: start: 20090602
  9. PREDNISOLONE [Concomitant]
     Dosage: 10 MG MANE
  10. PREDNISOLONE [Concomitant]
     Dosage: 9 MG MANE
     Dates: start: 20090602
  11. CANDESARTAN [Concomitant]
     Dosage: UNK
     Dates: start: 20090602
  12. FENTANYL [Concomitant]
     Dosage: 50 EVERY 3 DAYS
  13. ENDONE [Concomitant]
     Dosage: UNK
  14. VITAMIN D [Concomitant]
  15. AUGMENTIN '125' [Concomitant]
  16. CEFTRIAXONE [Concomitant]
  17. ENOXAPARIN SODIUM [Concomitant]
     Indication: PROPHYLAXIS

REACTIONS (3)
  - C-REACTIVE PROTEIN INCREASED [None]
  - NEUTROPHIL COUNT INCREASED [None]
  - WHITE BLOOD CELL COUNT INCREASED [None]
